FAERS Safety Report 9170092 (Version 1)
Quarter: 2013Q1

REPORT INFORMATION
  Report Type: Spontaneous
  Country: US (occurrence: None)
  Receive Date: 20130307
  Receipt Date: 20130307
  Transmission Date: 20140127
  Serious: Yes (Other)
  Sender: FDA-Public Use
  Company Number: TPA2012A08045

PATIENT
  Sex: Male

DRUGS (1)
  1. ACTOS (PIOGLITAZONE HYDROCHLORIDE) [Suspect]
     Indication: TYPE 2 DIABETES MELLITUS
     Dates: start: 20040116, end: 20110715

REACTIONS (3)
  - Bladder cancer stage IV [None]
  - Myocardial infarction [None]
  - Nephrolithiasis [None]
